FAERS Safety Report 5370145-0 (Version None)
Quarter: 2007Q2

REPORT INFORMATION
  Report Type: 
  Country: None (occurrence: None)
  Receive Date: 20070613
  Receipt Date: 20070307
  Transmission Date: 20071010
  Serious: No
  Sender: FDA-Public Use
  Company Number: IND-AE-07-SAN-008

PATIENT
  Age: 59 Year
  Sex: Female

DRUGS (3)
  1. SANCTURA [Suspect]
     Indication: HYPERTONIC BLADDER
     Dosage: 20MG - QD - PO
     Route: 048
     Dates: start: 20070227, end: 20070305
  2. AMARYL [Concomitant]
  3. DARVOCET [Concomitant]

REACTIONS (9)
  - ABDOMINAL PAIN UPPER [None]
  - ARTHRALGIA [None]
  - CONSTIPATION [None]
  - DRY EYE [None]
  - DRY MOUTH [None]
  - FATIGUE [None]
  - HEADACHE [None]
  - MYALGIA [None]
  - URINARY RETENTION [None]
